FAERS Safety Report 5972328-5 (Version None)
Quarter: 2008Q4

REPORT INFORMATION
  Report Type: 
  Country: None (occurrence: None)
  Receive Date: 20081201
  Receipt Date: 20080910
  Transmission Date: 20090506
  Serious: No
  Sender: FDA-Public Use
  Company Number: US-TEVA-177283USA

PATIENT
  Sex: Female

DRUGS (5)
  1. SALBUTAMOL SULFATE INHALATION, 0.09 MG [Suspect]
     Route: 055
  2. SERETIDE [Concomitant]
  3. CITALOPRAM HYDROBROMIDE [Concomitant]
  4. BREVA [Concomitant]
  5. PRAVASTATIN [Concomitant]

REACTIONS (3)
  - ASTHMA [None]
  - BRONCHOSPASM [None]
  - DRUG INEFFECTIVE [None]
